FAERS Safety Report 25073279 (Version 6)
Quarter: 2025Q2

REPORT INFORMATION
  Report Type: Spontaneous
  Country: FR (occurrence: FR)
  Receive Date: 20250313
  Receipt Date: 20250520
  Transmission Date: 20250717
  Serious: Yes (Other)
  Sender: SANDOZ
  Company Number: FR-AFSSAPS-AN2024001460

PATIENT
  Age: 57 Year
  Sex: Female
  Weight: 67 kg

DRUGS (32)
  1. APREPITANT [Suspect]
     Active Substance: APREPITANT
     Indication: Vomiting
     Dosage: 160 MG,Q2W
     Route: 048
     Dates: start: 20240812
  2. APREPITANT [Suspect]
     Active Substance: APREPITANT
     Indication: Vomiting
  3. APREPITANT [Suspect]
     Active Substance: APREPITANT
     Indication: Vomiting
  4. BACTRIM [Suspect]
     Active Substance: SULFAMETHOXAZOLE\TRIMETHOPRIM
     Indication: Infection prophylaxis
     Dosage: 3 DOSAGE FORM, Q2WEEKS
     Route: 048
     Dates: start: 20240812
  5. BLEOMYCIN [Suspect]
     Active Substance: BLEOMYCIN SULFATE
     Indication: Hodgkin^s disease
     Route: 042
     Dates: start: 20240812, end: 20240924
  6. LEUCOVORIN CALCIUM [Suspect]
     Active Substance: LEUCOVORIN CALCIUM
     Indication: Vitamin supplementation
     Dosage: 2 DOSAGE FORM, 1/WEEK
     Route: 048
     Dates: start: 20240812
  7. LEUCOVORIN CALCIUM [Suspect]
     Active Substance: LEUCOVORIN CALCIUM
     Indication: Vitamin supplementation
     Dosage: 2 DOSAGE FORM, 1/WEEK
     Route: 048
     Dates: start: 20240812
  8. DACARBAZINE [Suspect]
     Active Substance: DACARBAZINE
     Indication: Hodgkin^s disease
     Dosage: 650 MILLIGRAM
     Route: 042
     Dates: start: 20240812
  9. DOXORUBICIN HYDROCHLORIDE [Suspect]
     Active Substance: DOXORUBICIN HYDROCHLORIDE
     Indication: Hodgkin^s disease
     Dosage: 43 MILLIGRAM, QD
     Route: 042
     Dates: start: 20240812
  10. VINBLASTINE SULFATE [Suspect]
     Active Substance: VINBLASTINE SULFATE
     Indication: Hodgkin^s disease
     Dosage: 10.4 MILLIGRAM, QD
     Route: 042
     Dates: start: 20240812
  11. LANSOPRAZOLE [Suspect]
     Active Substance: LANSOPRAZOLE
     Indication: Prophylaxis against gastrointestinal ulcer
     Dosage: 15 MG, QD
     Route: 048
     Dates: start: 20240909, end: 20241015
  12. LANSOPRAZOLE [Suspect]
     Active Substance: LANSOPRAZOLE
     Indication: Prophylaxis against gastrointestinal ulcer
  13. LANSOPRAZOLE [Suspect]
     Active Substance: LANSOPRAZOLE
     Indication: Prophylaxis against gastrointestinal ulcer
  14. LEUCOVORIN CALCIUM [Suspect]
     Active Substance: LEUCOVORIN CALCIUM
     Indication: Vitamin supplementation
     Dosage: 2 DF, QW
     Route: 048
     Dates: start: 20240812
  15. METOCLOPRAMIDE [Suspect]
     Active Substance: METOCLOPRAMIDE
     Indication: Nausea
     Dosage: 10 MG, QD
     Route: 048
     Dates: start: 20240812
  16. METOCLOPRAMIDE HYDROCHLORIDE [Suspect]
     Active Substance: METOCLOPRAMIDE HYDROCHLORIDE
     Indication: Vomiting
     Dosage: 10 MG, QD
     Route: 048
     Dates: start: 20240812
  17. METOCLOPRAMIDE HYDROCHLORIDE [Suspect]
     Active Substance: METOCLOPRAMIDE HYDROCHLORIDE
     Indication: Nausea
  18. MORPHINE SULFATE [Suspect]
     Active Substance: MORPHINE SULFATE
     Indication: Vomiting
     Dosage: 20 MILLIGRAM, QD
     Route: 048
     Dates: start: 20240923
  19. MORPHINE SULFATE [Suspect]
     Active Substance: MORPHINE SULFATE
     Indication: Pain
     Dosage: 5 MILLIGRAM
     Route: 048
     Dates: start: 20240923
  20. POLYETHYLENE GLYCOLS [Suspect]
     Active Substance: POLYETHYLENE GLYCOLS
     Indication: Constipation
     Route: 048
     Dates: start: 20240812
  21. METHYLPREDNISOLONE [Suspect]
     Active Substance: METHYLPREDNISOLONE
     Indication: Hodgkin^s disease
     Dosage: 20 MILLIGRAM, QD
     Route: 042
     Dates: start: 20240812
  22. MORPHINE SULFATE [Suspect]
     Active Substance: MORPHINE SULFATE
     Indication: Pain
     Dosage: 20 MILLIGRAM, QD
     Route: 048
     Dates: start: 20240923
  23. MORPHINE SULFATE [Suspect]
     Active Substance: MORPHINE SULFATE
     Route: 048
     Dates: start: 20240923
  24. ACETAMINOPHEN [Suspect]
     Active Substance: ACETAMINOPHEN
     Indication: Pain
     Dosage: 1 G, QD
     Route: 048
  25. ACETAMINOPHEN [Suspect]
     Active Substance: ACETAMINOPHEN
     Indication: Vomiting
  26. SULFAMETHOXAZOLE\TRIMETHOPRIM [Suspect]
     Active Substance: SULFAMETHOXAZOLE\TRIMETHOPRIM
     Indication: Infection prophylaxis
     Dosage: 3 DF, QW
     Route: 048
  27. VALACYCLOVIR HYDROCHLORIDE [Suspect]
     Active Substance: VALACYCLOVIR HYDROCHLORIDE
     Indication: Infection prophylaxis
     Dosage: 1 GRAM, QD
     Route: 048
     Dates: start: 20240812
  28. VINBLASTINE [Suspect]
     Active Substance: VINBLASTINE
     Indication: Hodgkin^s disease
     Route: 065
     Dates: start: 20240812
  29. ONDANSETRON [Suspect]
     Active Substance: ONDANSETRON
     Dosage: 6 DF, QOW (6 DOSAGE FORM, Q2WEEKS) ORODISPERSIBLE TABLET
     Route: 048
  30. ONDANSETRON [Suspect]
     Active Substance: ONDANSETRON
     Dosage: 6 DF, QOW (6 DOSAGE FORM, Q2WEEKS) ORODISPERSIBLE TABLET
     Route: 048
  31. ONDANSETRON [Suspect]
     Active Substance: ONDANSETRON
     Indication: Vomiting
     Dosage: 6 DF, Q2W, ORODISPERSIBLE FILMS
     Route: 048
     Dates: start: 20240812
  32. ONDANSETRON [Suspect]
     Active Substance: ONDANSETRON
     Dosage: 6 DF, QOW (6 DOSAGE FORM, Q2WEEKS) ORODISPERSIBLE TABLET
     Route: 048
     Dates: start: 20240812

REACTIONS (1)
  - Neuropathy peripheral [Recovering/Resolving]

NARRATIVE: CASE EVENT DATE: 20240101
